FAERS Safety Report 4773995-4 (Version None)
Quarter: 2005Q3

REPORT INFORMATION
  Report Type: 
  Country: None (occurrence: None)
  Receive Date: 20050920
  Receipt Date: 20030925
  Transmission Date: 20060218
  Serious: Yes (Other)
  Sender: FDA-Public Use
  Company Number: 2003AP03447

PATIENT
  Age: 79 Year
  Sex: Female

DRUGS (4)
  1. SEROQUEL [Suspect]
     Indication: HYPOCHONDRIASIS
     Route: 048
     Dates: start: 20030401
  2. SEROQUEL [Suspect]
     Indication: ANXIETY
     Route: 048
     Dates: start: 20030401
  3. ARICEPT [Concomitant]
     Route: 065
  4. CERCINE [Concomitant]
     Route: 065

REACTIONS (1)
  - CONVULSION [None]
